FAERS Safety Report 6999693-4 (Version None)
Quarter: 2010Q3

REPORT INFORMATION
  Report Type: 
  Country: None (occurrence: None)
  Receive Date: 20100920
  Receipt Date: 20091117
  Transmission Date: 20110219
  Serious: No
  Sender: FDA-Public Use
  Company Number: US-ASTRAZENECA-2008UW27433

PATIENT
  Age: 49 Year
  Sex: Female
  Weight: 80.7 kg

DRUGS (1)
  1. SEROQUEL [Suspect]
     Indication: INSOMNIA
     Route: 048
     Dates: start: 20020401, end: 20040401

REACTIONS (4)
  - CONTUSION [None]
  - FALL [None]
  - JOINT SPRAIN [None]
  - TYPE 2 DIABETES MELLITUS [None]
